FAERS Safety Report 5254729-6 (Version None)
Quarter: 2007Q1

REPORT INFORMATION
  Report Type: 
  Country: None (occurrence: None)
  Receive Date: 20070228
  Receipt Date: 20060825
  Transmission Date: 20070707
  Serious: Yes (Other)
  Sender: FDA-Public Use
  Company Number: 2006090014

PATIENT
  Age: 31 Year
  Sex: Female
  Weight: 72.5755 kg

DRUGS (4)
  1. ASTELIN [Suspect]
     Indication: RHINITIS ALLERGIC
     Dosage: 1096 MCG (548 MCG, 2 IN 1 D), IN
     Route: 055
     Dates: start: 20050516, end: 20050522
  2. DESOGEN [Concomitant]
  3. LEVOXYL [Concomitant]
  4. ALLEGRA [Concomitant]

REACTIONS (3)
  - ABORTION SPONTANEOUS [None]
  - DRUG EXPOSURE DURING PREGNANCY [None]
  - PREGNANCY [None]
